FAERS Safety Report 5619201-X (Version None)
Quarter: 2008Q1

REPORT INFORMATION
  Report Type: 
  Country: None (occurrence: None)
  Receive Date: 20080205
  Receipt Date: 20080121
  Transmission Date: 20080703
  Serious: Yes (Other)
  Sender: FDA-Public Use
  Company Number: 2008S1001004

PATIENT
  Age: 38 Year
  Sex: Female

DRUGS (4)
  1. MOVOX /00615202/ (FLUVOXAMINE MALEATE) (50 MG) [Suspect]
     Indication: DEPRESSION
     Dosage: 50 MG; AT BEDTIME; ORAL
     Route: 048
     Dates: start: 20080103, end: 20080111
  2. AVAPRO [Concomitant]
  3. VENTOLIN [Concomitant]
  4. SERETIDE /01420901/ [Concomitant]

REACTIONS (6)
  - CHEST PAIN [None]
  - CRYING [None]
  - INAPPROPRIATE AFFECT [None]
  - MIGRAINE [None]
  - SPEECH DISORDER [None]
  - VISUAL DISTURBANCE [None]
